FAERS Safety Report 4885398-2 (Version None)
Quarter: 2005Q4

REPORT INFORMATION
  Report Type: 
  Country: None (occurrence: None)
  Receive Date: 20051220
  Receipt Date: 20050210
  Transmission Date: 20060501
  Serious: Yes (Other)
  Sender: FDA-Public Use
  Company Number: HQWYE365816FEB05

PATIENT
  Age: 45 Year
  Sex: Male
  Weight: 86.26 kg

DRUGS (1)
  1. EFFEXOR XR [Suspect]
     Indication: DEPRESSION
     Dosage: 150 NG 1X PER 1 DAY, ORAL
     Route: 048
     Dates: start: 19950101

REACTIONS (4)
  - ABNORMAL DREAMS [None]
  - DRUG WITHDRAWAL SYNDROME [None]
  - FATIGUE [None]
  - TEMPERATURE INTOLERANCE [None]
